FAERS Safety Report 8171672-3 (Version None)
Quarter: 2012Q1

REPORT INFORMATION
  Report Type: 
  Country: None (occurrence: None)
  Receive Date: 20120104
  Receipt Date: 20111108
  Transmission Date: 20120608
  Serious: No
  Sender: FDA-Public Use
  Company Number: 2011HGS-002760

PATIENT
  Age: 45 Year
  Sex: Female
  Weight: 66.6788 kg

DRUGS (10)
  1. BENLYSTA [Suspect]
     Indication: SYSTEMIC LUPUS ERYTHEMATOSUS
     Dosage: 1 IN 28 D, INTRAVENOUS DRIP
     Route: 041
     Dates: start: 20110613
  2. LEUCOVORIN CALCIUM (CALCIUM FOLINATE) (CALCIUM FOLINATE) [Concomitant]
  3. PLAQENIL (HYDROXYCHLOROQUINE SULFATE) (HYDROXYCHLOROQUINE SULFATE) [Concomitant]
  4. TOPAMAX (TOPIRAMATE) (TOPIRAMATE) [Concomitant]
  5. VITAMIN D (ERGOCALCIFEROL) (ERGOCALCIFEROL) [Concomitant]
  6. LORAZEPAM [Concomitant]
  7. FOLIC ACID [Concomitant]
  8. ETHINYL ESTRADIOL/LEVONORGESTREL (EUGYNON) (ETHINYLESTRADIOL, LEVONORG [Concomitant]
  9. METHOTREXATE [Concomitant]
  10. CYMBALTA [Concomitant]

REACTIONS (2)
  - INCREASED UPPER AIRWAY SECRETION [None]
  - MIGRAINE [None]
